FAERS Safety Report 20645892 (Version 2)
Quarter: 2023Q2

REPORT INFORMATION
  Report Type: Report from Study
  Country: RO (occurrence: RO)
  Receive Date: 20220329
  Receipt Date: 20230502
  Transmission Date: 20230722
  Serious: Yes (Other)
  Sender: FDA-Public Use
  Company Number: RO-SUN PHARMACEUTICAL INDUSTRIES LTD-2022R1-331077

PATIENT
  Age: 6 Year
  Sex: Female

DRUGS (1)
  1. VALPROIC ACID [Suspect]
     Active Substance: VALPROIC ACID
     Indication: Post-traumatic epilepsy
     Dosage: UNK
     Route: 065

REACTIONS (2)
  - Acute hepatic failure [Unknown]
  - Accidental overdose [Unknown]
